FAERS Safety Report 23621645 (Version 1)
Quarter: 2024Q1

REPORT INFORMATION
  Report Type: Spontaneous
  Country: US (occurrence: None)
  Receive Date: 20240311
  Receipt Date: 20240311
  Transmission Date: 20240409
  Serious: Yes (Death)
  Sender: FDA-Public Use
  Company Number: None

PATIENT
  Age: 76 Year
  Sex: Female

DRUGS (2)
  1. LENALIDOMIDE [Suspect]
     Active Substance: LENALIDOMIDE
     Indication: Non-Hodgkin^s lymphoma
     Dosage: FREQUENCY : DAILY;?
     Route: 048
     Dates: start: 20231215, end: 20231229
  2. RITUXAN [Suspect]
     Active Substance: RITUXIMAB

REACTIONS (7)
  - Drug intolerance [None]
  - Peripheral swelling [None]
  - Orthopnoea [None]
  - Infusion related reaction [None]
  - Hypervolaemia [None]
  - Wheezing [None]
  - Acute myocardial infarction [None]

NARRATIVE: CASE EVENT DATE: 20231229
